FAERS Safety Report 19410976 (Version 1)
Quarter: 2021Q2

REPORT INFORMATION
  Report Type: Report from Study
  Country: CA (occurrence: CA)
  Receive Date: 20210614
  Receipt Date: 20210614
  Transmission Date: 20210717
  Serious: Yes (Other)
  Sender: FDA-Public Use
  Company Number: CA-JNJFOC-20210615412

PATIENT
  Age: 16 Year
  Sex: Male
  Weight: 61.5 kg

DRUGS (2)
  1. REMICADE [Suspect]
     Active Substance: INFLIXIMAB
     Indication: CROHN^S DISEASE
     Route: 042
     Dates: start: 20210505
  2. REMICADE [Suspect]
     Active Substance: INFLIXIMAB
     Dosage: NEW RX AT 400 MG WEEKS 6 AND Q 6?8 WEEKS (IN MAINTENANCE)
     Route: 042

REACTIONS (3)
  - Off label use [Unknown]
  - Product use issue [Unknown]
  - Crohn^s disease [Unknown]

NARRATIVE: CASE EVENT DATE: 2021
